FAERS Safety Report 5157195-4 (Version None)
Quarter: 2006Q4

REPORT INFORMATION
  Report Type: 
  Country: None (occurrence: None)
  Receive Date: 20061127
  Receipt Date: 20061113
  Transmission Date: 20070319
  Serious: Yes (Hospitalization)
  Sender: FDA-Public Use
  Company Number: PHRM2006FR03080

PATIENT
  Age: 78 Year
  Sex: Female

DRUGS (7)
  1. ANAFRANIL [Suspect]
     Route: 048
     Dates: start: 20060901, end: 20060916
  2. COAPROVEL [Concomitant]
     Route: 048
  3. KALEORID [Concomitant]
     Route: 048
  4. FENOFIBRATE [Concomitant]
     Route: 048
  5. LANZOR [Concomitant]
     Route: 048
  6. DOLIPRANE [Concomitant]
  7. VOLTAREN [Suspect]
     Dosage: 50 MG, UNK
     Route: 048
     Dates: start: 20060901, end: 20060916

REACTIONS (6)
  - FOLATE DEFICIENCY [None]
  - HYPOALBUMINAEMIA [None]
  - HYPONATRAEMIA [None]
  - HYPOPROTEINAEMIA [None]
  - MALNUTRITION [None]
  - PANCYTOPENIA [None]
